FAERS Safety Report 7610815-4 (Version None)
Quarter: 2011Q3

REPORT INFORMATION
  Report Type: 
  Country: None (occurrence: None)
  Receive Date: 20110715
  Receipt Date: 20110705
  Transmission Date: 20111222
  Serious: Yes (Hospitalization, Other)
  Sender: FDA-Public Use
  Company Number: PHHY2011DE61021

PATIENT
  Sex: Male
  Weight: 57 kg

DRUGS (4)
  1. ZOMETA [Suspect]
     Indication: BONE DISORDER
     Dosage: 4 MG/5ML EVERY 4 WEEKS
     Route: 042
     Dates: start: 20090325, end: 20110512
  2. DURAGESIC-100 [Concomitant]
     Indication: PAIN
     Dosage: 25 MG, DAILY
     Dates: start: 20110315
  3. FENTANYL [Concomitant]
     Indication: PAIN
     Dosage: 100 MG, QD
     Route: 048
     Dates: start: 20110315
  4. SUTENT [Concomitant]
     Indication: RENAL CELL CARCINOMA
     Dosage: 50 MG, DAILY
     Route: 048
     Dates: start: 20110101

REACTIONS (11)
  - JAW FRACTURE [None]
  - NEOPLASM PROGRESSION [None]
  - NEOPLASM MALIGNANT [None]
  - METASTASES TO BONE [None]
  - CONVULSION [None]
  - GENERAL PHYSICAL HEALTH DETERIORATION [None]
  - METASTASES TO LUNG [None]
  - LEUKOPENIA [None]
  - PLEURAL EFFUSION [None]
  - ANAEMIA [None]
  - OSTEONECROSIS OF JAW [None]
